FAERS Safety Report 22225140 (Version 1)
Quarter: 2023Q2

REPORT INFORMATION
  Report Type: Spontaneous
  Country: FR (occurrence: FR)
  Receive Date: 20230418
  Receipt Date: 20230418
  Transmission Date: 20230722
  Serious: Yes (Hospitalization)
  Sender: FDA-Public Use
  Company Number: None

PATIENT
  Age: 66 Year
  Sex: Female
  Weight: 68 kg

DRUGS (6)
  1. DEXAMETHASONE [Suspect]
     Active Substance: DEXAMETHASONE
     Indication: Analgesic therapy
     Route: 042
     Dates: start: 20221130, end: 20221130
  2. DROPERIDOL [Suspect]
     Active Substance: DROPERIDOL
     Indication: Antiemetic supportive care
     Dosage: 2,5 MG/1 ML,
     Route: 042
     Dates: start: 20221130, end: 20221130
  3. KETAMINE HYDROCHLORIDE [Suspect]
     Active Substance: KETAMINE HYDROCHLORIDE
     Indication: Analgesic therapy
     Dosage: 50 MG/ML
     Route: 042
     Dates: start: 20221130, end: 20221130
  4. SUFENTANIL CITRATE [Suspect]
     Active Substance: SUFENTANIL CITRATE
     Indication: Anaesthesia
     Dosage: 50 MCG/ML
     Route: 042
     Dates: start: 20221130, end: 20221130
  5. ROPIVACAINE HYDROCHLORIDE [Suspect]
     Active Substance: ROPIVACAINE HYDROCHLORIDE
     Indication: Anaesthesia
     Dosage: SOLUTION FOR INJECTION IN AMPOULE
     Route: 042
     Dates: start: 20221130, end: 20221130
  6. PROPOFOL [Concomitant]
     Active Substance: PROPOFOL
     Indication: Anaesthesia
     Dosage: EMULSION FOR INJECTION IN PRE-FILLED SYRINGE
     Route: 042
     Dates: start: 20221130, end: 20221130

REACTIONS (3)
  - Bronchospasm [Recovered/Resolved]
  - Shock [Recovered/Resolved]
  - Hypotension [Recovered/Resolved]

NARRATIVE: CASE EVENT DATE: 20221130
